FAERS Safety Report 15179214 (Version 1)
Quarter: 2018Q3

REPORT INFORMATION
  Report Type: Spontaneous
  Country: BD (occurrence: BD)
  Receive Date: 20180723
  Receipt Date: 20180723
  Transmission Date: 20181010
  Serious: Yes (Other)
  Sender: FDA-Public Use
  Company Number: BD-CHARTWELL PHARMA-2052558

PATIENT
  Age: 38 Year
  Sex: Male

DRUGS (1)
  1. PREDNISOLONE. [Suspect]
     Active Substance: PREDNISOLONE
     Indication: IGA NEPHROPATHY

REACTIONS (1)
  - Diabetes mellitus [Recovering/Resolving]
